FAERS Safety Report 9792609 (Version 1)
Quarter: 2014Q1

REPORT INFORMATION
  Report Type: Spontaneous
  Country: US (occurrence: US)
  Receive Date: 20140102
  Receipt Date: 20140102
  Transmission Date: 20141002
  Serious: No
  Sender: FDA-Public Use
  Company Number: US-SA-2013SA106840

PATIENT
  Age: 49 Year
  Sex: Female

DRUGS (3)
  1. AUBAGIO [Suspect]
     Indication: MULTIPLE SCLEROSIS
     Route: 048
     Dates: start: 20130610
  2. SIMVASTATIN [Concomitant]
     Indication: BLOOD CHOLESTEROL INCREASED
  3. ZYRTEC [Concomitant]

REACTIONS (1)
  - Alopecia [Not Recovered/Not Resolved]
